FAERS Safety Report 6723360-5 (Version None)
Quarter: 2010Q2

REPORT INFORMATION
  Report Type: 
  Country: None (occurrence: None)
  Receive Date: 20100511
  Receipt Date: 20100427
  Transmission Date: 20101027
  Serious: Yes (Other)
  Sender: FDA-Public Use
  Company Number: DE-1181740

PATIENT
  Age: 7 Year
  Sex: Female

DRUGS (1)
  1. CYCLOPENTOLATE HCL [Suspect]
     Indication: OPHTHALMOLOGICAL EXAMINATION
     Dosage: 3 APPLICATIONS; 5 MINUTES APART, OPHTHALMIC
     Route: 047
     Dates: start: 20100329, end: 20100329

REACTIONS (8)
  - ACUTE PSYCHOSIS [None]
  - AGGRESSION [None]
  - ANXIETY [None]
  - BALANCE DISORDER [None]
  - CONFUSIONAL STATE [None]
  - DISORIENTATION [None]
  - DIZZINESS [None]
  - HALLUCINATION [None]
